FAERS Safety Report 8141688-1 (Version None)
Quarter: 2012Q1

REPORT INFORMATION
  Report Type: 
  Country: None (occurrence: None)
  Receive Date: 20120216
  Receipt Date: 20120206
  Transmission Date: 20120608
  Serious: Yes (Other)
  Sender: FDA-Public Use
  Company Number: DE-NOVOPROD-342216

PATIENT
  Age: 11 Year
  Sex: Female
  Weight: 42.4 kg

DRUGS (1)
  1. NORDITROPIN FLEXPRO [Suspect]
     Indication: SMALL FOR DATES BABY
     Dosage: 1.2 MG, QD
     Route: 058
     Dates: start: 20060801, end: 20110722

REACTIONS (2)
  - PAPILLOEDEMA [None]
  - VISUAL IMPAIRMENT [None]
